FAERS Safety Report 6365227-0 (Version None)
Quarter: 2009Q3

REPORT INFORMATION
  Report Type: 
  Country: None (occurrence: None)
  Receive Date: 20090919
  Receipt Date: 20090810
  Transmission Date: 20100115
  Serious: No
  Sender: FDA-Public Use
  Company Number: US-ABBOTT-09P-163-0590485-00

PATIENT

DRUGS (6)
  1. HUMIRA [Suspect]
     Indication: RHEUMATOID ARTHRITIS
     Route: 058
     Dates: start: 20090101
  2. METHOTREXATE [Concomitant]
     Indication: RHEUMATOID ARTHRITIS
     Dates: start: 20090101
  3. ZYRTEC [Concomitant]
     Indication: SEASONAL ALLERGY
  4. NEXIUM [Concomitant]
     Indication: DYSPEPSIA
  5. BIRTH CONTROL PILLS [Concomitant]
     Indication: CONTRACEPTION
  6. FLOVENT [Concomitant]
     Indication: ASTHMA

REACTIONS (1)
  - INJECTION SITE REACTION [None]
